FAERS Safety Report 9407266 (Version 3)
Quarter: 2013Q3

REPORT INFORMATION
  Report Type: Spontaneous
  Country: IT (occurrence: IT)
  Receive Date: 20130718
  Receipt Date: 20130822
  Transmission Date: 20140515
  Serious: Yes (Hospitalization)
  Sender: FDA-Public Use
  Company Number: IT-FRI-1000046730

PATIENT
  Age: 84 Year
  Sex: Female

DRUGS (12)
  1. NEBIVOLOL [Suspect]
     Indication: HYPERTENSIVE HEART DISEASE
     Dosage: 2.5 MG
     Route: 048
     Dates: start: 20020109, end: 20130613
  2. LASITONE [Suspect]
     Indication: HYPERTENSIVE HEART DISEASE
     Dosage: 25 MG/37 MG
     Route: 048
     Dates: start: 20020109, end: 20130613
  3. FUROSEMIDE [Suspect]
     Indication: HYPERTENSIVE HEART DISEASE
     Dosage: 25 MG
     Route: 048
     Dates: start: 20020109, end: 20130613
  4. LISINOPRIL [Suspect]
     Indication: HYPERTENSIVE HEART DISEASE
     Dosage: 20 MG
     Route: 048
     Dates: start: 20020109, end: 20130613
  5. EUTIROX [Concomitant]
     Indication: HYPOTHYROIDISM
  6. DELTACORTENE [Concomitant]
     Indication: RHEUMATOID ARTHRITIS
  7. METFORMINA [Concomitant]
     Indication: TYPE 2 DIABETES MELLITUS
  8. OLANZAPINA [Concomitant]
  9. AMINOFILLINA [Concomitant]
  10. CITALOPRAM [Concomitant]
  11. METOTREXATO [Concomitant]
     Indication: RHEUMATOID ARTHRITIS
  12. ALLOPURINOLO [Concomitant]

REACTIONS (3)
  - Bradycardia [Recovered/Resolved]
  - Hypotension [Recovered/Resolved]
  - Renal failure acute [Recovered/Resolved]
